FAERS Safety Report 20867040 (Version 1)
Quarter: 2022Q2

REPORT INFORMATION
  Report Type: Spontaneous
  Country: DE (occurrence: DE)
  Receive Date: 20220524
  Receipt Date: 20220524
  Transmission Date: 20220721
  Serious: Yes (Other)
  Sender: FDA-Public Use
  Company Number: DE-UCBSA-2022024935

PATIENT
  Age: 25 Year
  Sex: Male

DRUGS (8)
  1. LEVETIRACETAM [Suspect]
     Active Substance: LEVETIRACETAM
     Indication: Product used for unknown indication
     Dosage: 5000 MILLIGRAM, QD, (2500 MILLIGRAM, 2X/DAY (BID)
  2. LEVETIRACETAM [Suspect]
     Active Substance: LEVETIRACETAM
     Dosage: 4000 MILLIGRAM, QD, (2000 MILLIGRAM, 2X/DAY (BID)
  3. LEVETIRACETAM [Suspect]
     Active Substance: LEVETIRACETAM
     Dosage: 18000 MILLIGRAM, QD, (9000 MILLIGRAM, 2X/DAY (BID)
  4. LEVETIRACETAM [Suspect]
     Active Substance: LEVETIRACETAM
     Dosage: 500 MILLIGRAM, QD, (250 MILLIGRAM, 2X/DAY (BID)
  5. BRIVARACETAM [Suspect]
     Active Substance: BRIVARACETAM
     Indication: Product used for unknown indication
     Dosage: 300 MILLIGRAM, (300MG)
  6. BRIVARACETAM [Suspect]
     Active Substance: BRIVARACETAM
     Dosage: 400 MILLIGRAM, QD, (400 MILLIGRAM, DAILY)
  7. VIMPAT [Suspect]
     Active Substance: LACOSAMIDE
     Indication: Product used for unknown indication
     Dosage: 400 MILLIGRAM, QD, (200 MILLIGRAM, 2X/DAY (BID)
  8. VIMPAT [Suspect]
     Active Substance: LACOSAMIDE
     Dosage: 200 MILLIGRAM, QD, (100 MILLIGRAM, 2X/DAY (BID)

REACTIONS (9)
  - Seizure [Unknown]
  - Fatigue [Unknown]
  - Somnolence [Unknown]
  - Impulsive behaviour [Unknown]
  - Drug resistance [Unknown]
  - Overdose [Unknown]
  - Product dose omission in error [Unknown]
  - Intentional product use issue [Unknown]
  - Therapeutic product effect incomplete [Unknown]
